FAERS Safety Report 7220358-8 (Version None)
Quarter: 2011Q1

REPORT INFORMATION
  Report Type: 
  Country: None (occurrence: None)
  Receive Date: 20110111
  Receipt Date: 20101006
  Transmission Date: 20110831
  Serious: No
  Sender: FDA-Public Use
  Company Number: US-BAYER-201022329BCC

PATIENT
  Sex: Female
  Weight: 86.364 kg

DRUGS (5)
  1. ALEVE [Suspect]
     Indication: ARTHRALGIA
     Route: 048
  2. LISINOPRIL AND HYDROCHLOROTHIAZIDE [Concomitant]
  3. ALEVE [Suspect]
     Dosage: CONSUMER TAKES 2 TABLETS AT 6:00AM, 1 TABLET AT 2:00PM AND 1 TABLET AT 10:00PM.
     Route: 048
  4. NORVASC [Concomitant]
  5. ASPIRIN [Concomitant]

REACTIONS (1)
  - NO ADVERSE EVENT [None]
